FAERS Safety Report 8049629-2 (Version None)
Quarter: 2012Q1

REPORT INFORMATION
  Report Type: 
  Country: None (occurrence: None)
  Receive Date: 20120117
  Receipt Date: 20120105
  Transmission Date: 20120608
  Serious: Yes (Other)
  Sender: FDA-Public Use
  Company Number: CA-UCBSA-045400

PATIENT
  Age: 52 Year
  Sex: Female
  Weight: 108 kg

DRUGS (5)
  1. METHOTREXATE [Concomitant]
     Indication: RHEUMATOID ARTHRITIS
     Route: 058
     Dates: start: 20040101
  2. FOLIC ACID [Concomitant]
     Indication: RHEUMATOID ARTHRITIS
     Route: 048
     Dates: start: 20040101
  3. CIMZIA [Suspect]
     Indication: RHEUMATOID ARTHRITIS
     Route: 058
     Dates: start: 20091209, end: 20110815
  4. NEXIUM [Concomitant]
     Indication: RHEUMATOID ARTHRITIS
     Route: 048
  5. NARDIL [Concomitant]
     Indication: DEPRESSION
     Route: 048

REACTIONS (4)
  - COLITIS MICROSCOPIC [None]
  - SYNCOPE [None]
  - LOSS OF CONSCIOUSNESS [None]
  - KNEE ARTHROPLASTY [None]
